FAERS Safety Report 15868751 (Version 1)
Quarter: 2019Q1

REPORT INFORMATION
  Report Type: Spontaneous
  Country: IR (occurrence: IR)
  Receive Date: 20190125
  Receipt Date: 20190125
  Transmission Date: 20190417
  Serious: Yes (Hospitalization)
  Sender: FDA-Public Use
  Company Number: IR-NOVOPROD-642689

PATIENT
  Age: 516 Month
  Sex: Female
  Weight: 73 kg

DRUGS (3)
  1. GLITAZONE [Concomitant]
  2. NOVOMIX 30 FLEXPEN [Suspect]
     Active Substance: INSULIN ASPART
     Indication: TYPE 2 DIABETES MELLITUS
     Dosage: 82 IU, BID
     Route: 058
  3. METFORMIN [Concomitant]
     Active Substance: METFORMIN HYDROCHLORIDE

REACTIONS (4)
  - Skin discolouration [Unknown]
  - Pain [Unknown]
  - Diabetes mellitus inadequate control [Unknown]
  - Drug hypersensitivity [Unknown]
